FAERS Safety Report 25009139 (Version 1)
Quarter: 2025Q1

REPORT INFORMATION
  Report Type: Spontaneous
  Country: CN (occurrence: CN)
  Receive Date: 20250225
  Receipt Date: 20250225
  Transmission Date: 20250409
  Serious: Yes (Other)
  Sender: BAYER HEALTHCARE PHARMACEUTICALS INC.
  Company Number: CN-BAYER-2025A026754

PATIENT
  Age: 60 Year
  Sex: Male
  Weight: 77 kg

DRUGS (1)
  1. GLUCOBAY [Suspect]
     Active Substance: ACARBOSE
     Indication: Diabetes mellitus
     Dosage: 50 MG, TID
     Route: 048
     Dates: start: 20250213, end: 20250213

REACTIONS (1)
  - Abdominal distension [Recovering/Resolving]

NARRATIVE: CASE EVENT DATE: 20250213
